FAERS Safety Report 6100146-6 (Version None)
Quarter: 2009Q1

REPORT INFORMATION
  Report Type: 
  Country: None (occurrence: None)
  Receive Date: 20090302
  Receipt Date: 20090302
  Transmission Date: 20090719
  Serious: Yes (Other)
  Sender: FDA-Public Use
  Company Number: None

PATIENT
  Sex: Male
  Weight: 92.9874 kg

DRUGS (1)
  1. ANDRODERM [Suspect]
     Indication: HYPOGONADISM
     Dosage: 5 DAILY TRANSDERMAL ABOUT 9 OR 10 YEARS
     Route: 062

REACTIONS (3)
  - BLOOD TESTOSTERONE DECREASED [None]
  - POOR QUALITY DRUG ADMINISTERED [None]
  - PRODUCT QUALITY ISSUE [None]
